FAERS Safety Report 6207701-3 (Version None)
Quarter: 2009Q2

REPORT INFORMATION
  Report Type: 
  Country: None (occurrence: None)
  Receive Date: 20090528
  Receipt Date: 20090522
  Transmission Date: 20091009
  Serious: Yes (Other)
  Sender: FDA-Public Use
  Company Number: JP-MERCK-0905USA03580

PATIENT
  Age: 47 Year
  Sex: Male

DRUGS (6)
  1. TRUSOPT [Suspect]
     Indication: GLAUCOMA
     Route: 047
     Dates: start: 20090415
  2. TRUSOPT [Suspect]
     Route: 047
  3. XALATAN [Concomitant]
     Indication: GLAUCOMA
     Route: 047
     Dates: start: 20081224
  4. RYSMON [Concomitant]
     Indication: GLAUCOMA
     Route: 047
     Dates: start: 20081224
  5. COZAAR [Concomitant]
     Indication: HYPERTENSION
     Route: 048
  6. AMARYL [Concomitant]
     Indication: DIABETES MELLITUS
     Route: 048

REACTIONS (1)
  - THROAT TIGHTNESS [None]
